FAERS Safety Report 5758409-X (Version None)
Quarter: 2008Q2

REPORT INFORMATION
  Report Type: 
  Country: None (occurrence: None)
  Receive Date: 20080603
  Receipt Date: 20080603
  Transmission Date: 20081010
  Serious: Yes (Other)
  Sender: FDA-Public Use
  Company Number: None

PATIENT
  Age: 39 Year
  Sex: Male
  Weight: 195 kg

DRUGS (1)
  1. RES-Q-DENT TOOTHPASTE         ECO-DENT [Suspect]
     Dosage: POTASSIUM NITRATE 5%  2X DAILY        DENTAL
     Route: 004
     Dates: start: 20080526, end: 20080601

REACTIONS (3)
  - CHEST DISCOMFORT [None]
  - DYSPNOEA [None]
  - PHARMACEUTICAL PRODUCT COMPLAINT [None]
